FAERS Safety Report 6093226-5 (Version None)
Quarter: 2009Q1

REPORT INFORMATION
  Report Type: 
  Country: None (occurrence: None)
  Receive Date: 20090226
  Receipt Date: 20090217
  Transmission Date: 20090719
  Serious: Yes (Hospitalization)
  Sender: FDA-Public Use
  Company Number: JP-JNJFOC-20080800884

PATIENT
  Sex: Male
  Weight: 69 kg

DRUGS (3)
  1. INFLIXIMAB, RECOMBINANT [Suspect]
     Route: 042
  2. INFLIXIMAB, RECOMBINANT [Suspect]
     Indication: COLITIS ULCERATIVE
     Route: 042
  3. PREDONINE [Concomitant]

REACTIONS (2)
  - COLITIS ULCERATIVE [None]
  - COLON CANCER [None]
